FAERS Safety Report 14781305 (Version 2)
Quarter: 2018Q2

REPORT INFORMATION
  Report Type: Spontaneous
  Country: US (occurrence: US)
  Receive Date: 20180419
  Receipt Date: 20180524
  Transmission Date: 20180711
  Serious: No
  Sender: FDA-Public Use
  Company Number: US-JNJFOC-20180405538

PATIENT
  Sex: Female
  Weight: 58.51 kg

DRUGS (4)
  1. XARELTO [Suspect]
     Active Substance: RIVAROXABAN
     Indication: ATRIAL FLUTTER
     Route: 048
     Dates: start: 2017, end: 2017
  2. XARELTO [Suspect]
     Active Substance: RIVAROXABAN
     Indication: ATRIAL FLUTTER
     Route: 048
     Dates: start: 201802
  3. LISINOPRIL. [Concomitant]
     Active Substance: LISINOPRIL
     Indication: HYPERTENSION
     Route: 065
  4. PRESERVISION [Concomitant]
     Active Substance: MINERALS\VITAMINS
     Indication: VISUAL IMPAIRMENT
     Route: 065

REACTIONS (4)
  - Product label issue [Unknown]
  - Product use in unapproved indication [Unknown]
  - Allergy to metals [Not Recovered/Not Resolved]
  - Off label use [Unknown]

NARRATIVE: CASE EVENT DATE: 2017
